FAERS Safety Report 15782996 (Version 1)
Quarter: 2019Q1

REPORT INFORMATION
  Report Type: Spontaneous
  Country: GB (occurrence: GB)
  Receive Date: 20190102
  Receipt Date: 20190102
  Transmission Date: 20190417
  Serious: Yes (Other)
  Sender: FDA-Public Use
  Company Number: GB-ELEFSEE PHARMACEUTICALS INTERNATIONAL-GB-2018WTD001216

PATIENT
  Age: 76 Year
  Sex: Male

DRUGS (2)
  1. FENTANYL. [Suspect]
     Active Substance: FENTANYL
     Indication: SEDATIVE THERAPY
     Dosage: 50 ?G, UNK
     Route: 042
     Dates: start: 201610, end: 201703
  2. MIDAZOLAM [Suspect]
     Active Substance: MIDAZOLAM HYDROCHLORIDE
     Indication: SEDATIVE THERAPY
     Dosage: 5 MG, BOLUS
     Route: 042

REACTIONS (1)
  - Apnoea [Unknown]
